FAERS Safety Report 8056367-9 (Version None)
Quarter: 2011Q4

REPORT INFORMATION
  Report Type: 
  Country: None (occurrence: None)
  Receive Date: 20111220
  Receipt Date: 20110919
  Transmission Date: 20120403
  Serious: Yes (Hospitalization)
  Sender: FDA-Public Use
  Company Number: PHEH2011US04644

PATIENT
  Age: 55 Year
  Sex: Female

DRUGS (1)
  1. MYFORTIC [Suspect]
     Indication: RENAL TRANSPLANT
     Dosage: 540 MG, BID, ORAL, 180M G, BID, ORAL
     Route: 048
     Dates: start: 20100301

REACTIONS (1)
  - PNEUMONIA CYTOMEGALOVIRAL [None]
